FAERS Safety Report 6020706-0 (Version None)
Quarter: 2008Q4

REPORT INFORMATION
  Report Type: 
  Country: None (occurrence: None)
  Receive Date: 20081223
  Receipt Date: 20081223
  Transmission Date: 20090506
  Serious: Yes (Hospitalization)
  Sender: FDA-Public Use
  Company Number: None

PATIENT
  Sex: Male
  Weight: 77.7 kg

DRUGS (3)
  1. CYTARABINE [Suspect]
     Dosage: 30400 MG
     Dates: end: 20081206
  2. ETOPOSIDE [Suspect]
     Dosage: 2904 MG
     Dates: end: 20081206
  3. RITUXIMAB (MOAB C2B8 ANTI CD20 CHIMERIC) [Suspect]
     Dosage: 1426 MG
     Dates: end: 20081212

REACTIONS (5)
  - CATHETER SITE INFECTION [None]
  - FEBRILE NEUTROPENIA [None]
  - NEUTROPHIL COUNT DECREASED [None]
  - STAPHYLOCOCCAL INFECTION [None]
  - WHITE BLOOD CELL COUNT DECREASED [None]
